FAERS Safety Report 9144994 (Version 4)
Quarter: 2013Q4

REPORT INFORMATION
  Report Type: Spontaneous
  Country: US (occurrence: US)
  Receive Date: 20130307
  Receipt Date: 20131115
  Transmission Date: 20140711
  Serious: No
  Sender: FDA-Public Use
  Company Number: US-BIOGENIDEC-2013BI019051

PATIENT
  Sex: Female

DRUGS (4)
  1. TYSABRI [Suspect]
     Indication: MULTIPLE SCLEROSIS
     Route: 042
     Dates: start: 20120604
  2. AVONEX [Concomitant]
     Indication: MULTIPLE SCLEROSIS
     Route: 030
  3. AVONEX [Concomitant]
     Indication: MULTIPLE SCLEROSIS
     Route: 030
     Dates: start: 20000801
  4. AVONEX [Concomitant]
     Indication: MULTIPLE SCLEROSIS
     Route: 030
     Dates: start: 20090403

REACTIONS (15)
  - Gait disturbance [Recovered/Resolved]
  - Stress [Not Recovered/Not Resolved]
  - Burning sensation [Recovered/Resolved]
  - Hypoaesthesia [Unknown]
  - Muscle spasms [Unknown]
  - Tremor [Recovered/Resolved]
  - Hyperacusis [Recovered/Resolved]
  - Vision blurred [Recovered/Resolved]
  - Feeling abnormal [Recovered/Resolved]
  - Muscle spasticity [Recovered/Resolved]
  - Weight increased [Recovered/Resolved]
  - Sensory disturbance [Recovered/Resolved]
  - Fatigue [Unknown]
  - Multiple sclerosis [Recovered/Resolved]
  - Multiple sclerosis relapse [Unknown]
